FAERS Safety Report 18220165 (Version 8)
Quarter: 2020Q4

REPORT INFORMATION
  Report Type: Spontaneous
  Country: US (occurrence: US)
  Receive Date: 20200902
  Receipt Date: 20201228
  Transmission Date: 20210113
  Serious: No
  Sender: FDA-Public Use
  Company Number: US-SA-2020SA234452

PATIENT

DRUGS (2)
  1. DEXAMETHASONE. [Suspect]
     Active Substance: DEXAMETHASONE
     Indication: CHEMOTHERAPY
     Dosage: UNK UNK, QOW
     Route: 065
  2. CABLIVI [Suspect]
     Active Substance: CAPLACIZUMAB-YHDP
     Indication: THROMBOTIC MICROANGIOPATHY
     Dosage: 11 MG, QD
     Route: 058
     Dates: start: 20200823

REACTIONS (22)
  - Platelet count decreased [Recovered/Resolved]
  - Transferrin saturation abnormal [Unknown]
  - Monocyte count abnormal [Unknown]
  - Temperature intolerance [Unknown]
  - Nasal congestion [Unknown]
  - Injection site haemorrhage [Not Recovered/Not Resolved]
  - Injection site pain [Unknown]
  - Red blood cell count abnormal [Unknown]
  - Injection site bruising [Unknown]
  - Abdominal distension [Unknown]
  - Haematocrit abnormal [Unknown]
  - Paraesthesia [Unknown]
  - Blood iron abnormal [Unknown]
  - Rash erythematous [Unknown]
  - Localised infection [Unknown]
  - Herpes zoster [Unknown]
  - Platelet count increased [Unknown]
  - Epistaxis [Unknown]
  - Contusion [Unknown]
  - Haemoglobin abnormal [Unknown]
  - Mean cell haemoglobin concentration abnormal [Unknown]
  - Injection site erythema [Recovering/Resolving]

NARRATIVE: CASE EVENT DATE: 2020
